FAERS Safety Report 24394717 (Version 1)
Quarter: 2024Q4

REPORT INFORMATION
  Report Type: Spontaneous
  Country: CZ (occurrence: CZ)
  Receive Date: 20241004
  Receipt Date: 20241004
  Transmission Date: 20250115
  Serious: Yes (Death, Other)
  Sender: SANDOZ
  Company Number: CZ-CELLTRION HEALTHCARE HUNGARY KFT-2021CZ010894

PATIENT
  Sex: Male

DRUGS (12)
  1. CYTARABINE [Suspect]
     Active Substance: CYTARABINE
     Indication: Product used for unknown indication
     Dosage: UNK
     Route: 065
     Dates: start: 20200122
  2. CYTARABINE [Suspect]
     Active Substance: CYTARABINE
     Dosage: UNK
     Route: 065
     Dates: start: 20210305
  3. ETOPOSIDE [Suspect]
     Active Substance: ETOPOSIDE
     Indication: Product used for unknown indication
     Dosage: UNK
     Route: 065
     Dates: start: 20200122
  4. ETOPOSIDE [Suspect]
     Active Substance: ETOPOSIDE
     Dosage: UNK
     Route: 065
     Dates: start: 20200305
  5. METHOTREXATE [Suspect]
     Active Substance: METHOTREXATE
     Indication: Product used for unknown indication
     Dosage: UNK
     Route: 065
     Dates: start: 20200122
  6. METHOTREXATE [Suspect]
     Active Substance: METHOTREXATE
     Dosage: UNK
     Route: 065
     Dates: start: 20200305
  7. RITUXIMAB [Suspect]
     Active Substance: RITUXIMAB
     Dosage: UNK
     Route: 065
     Dates: start: 20200305
  8. RITUXIMAB [Suspect]
     Active Substance: RITUXIMAB
     Indication: Product used for unknown indication
     Dosage: UNK
     Route: 065
     Dates: start: 20200122
  9. IFOSFAMIDE [Concomitant]
     Active Substance: IFOSFAMIDE
     Indication: Non-Hodgkin^s lymphoma
     Dosage: UNK
     Route: 065
     Dates: start: 20200122
  10. IFOSFAMIDE [Concomitant]
     Active Substance: IFOSFAMIDE
     Indication: Product used for unknown indication
     Dosage: UNK
     Route: 065
     Dates: start: 20200305
  11. MESNA [Concomitant]
     Active Substance: MESNA
     Indication: Product used for unknown indication
     Dosage: UNK
     Route: 065
     Dates: start: 20200122
  12. MESNA [Concomitant]
     Active Substance: MESNA
     Dosage: UNK
     Route: 065
     Dates: start: 20200305

REACTIONS (16)
  - Metastases to the mediastinum [Fatal]
  - Metastases to liver [Fatal]
  - Disease progression [Fatal]
  - Neutropenia [Fatal]
  - Monoplegia [Fatal]
  - Tumour compression [Fatal]
  - Nerve compression [Fatal]
  - Pain in extremity [Fatal]
  - Weight decreased [Fatal]
  - Diffuse large B-cell lymphoma [Fatal]
  - Lymphadenopathy [Fatal]
  - Inflammation [Fatal]
  - Febrile neutropenia [Fatal]
  - Arthralgia [Fatal]
  - Therapy non-responder [Fatal]
  - Death [Fatal]

NARRATIVE: CASE EVENT DATE: 20200601
